FAERS Safety Report 8961770 (Version 1)
Quarter: 2012Q4

REPORT INFORMATION
  Report Type: 
  Country: US (occurrence: US)
  Receive Date: 20121212
  Receipt Date: 20121212
  Transmission Date: 20130627
  Serious: Yes (Hospitalization, Other)
  Sender: FDA-Public Use
  Company Number: US-MUTUAL PHARMACEUTICAL COMPANY, INC.-ALLP20120048

PATIENT
  Sex: Male
  Weight: 68.1 kg

DRUGS (8)
  1. ALLOPURINOL [Suspect]
     Indication: GOUT
     Route: 048
     Dates: start: 1994, end: 2009
  2. ALLOPURINOL [Suspect]
     Route: 048
     Dates: end: 20121202
  3. COLCHICINE [Concomitant]
     Indication: GOUT
     Route: 065
  4. PROBENECID [Concomitant]
     Indication: GOUT
     Route: 065
  5. METFORMIN [Concomitant]
     Indication: DIABETES
     Route: 065
  6. JANUVIA (SITAGLIPTIN) [Concomitant]
     Indication: DIABETES
     Route: 065
  7. RANEXA (RANOLAZINE EXTENDED-RELEASE TABLETS) [Concomitant]
     Indication: ANGINA PECTORIS
     Route: 065
     Dates: start: 201107
  8. METOPROLOL [Concomitant]
     Indication: HYPERTENSION
     Route: 065

REACTIONS (5)
  - Coronary artery occlusion [Unknown]
  - Angina pectoris [Unknown]
  - Dyspnoea [Unknown]
  - Gout [Recovered/Resolved]
  - Drug ineffective [None]
